FAERS Safety Report 8573942-3 (Version None)
Quarter: 2012Q2

REPORT INFORMATION
  Report Type: 
  Country: None (occurrence: None)
  Receive Date: 20120423
  Receipt Date: 20090923
  Transmission Date: 20120825
  Serious: Yes (Other)
  Sender: FDA-Public Use
  Company Number: PHEH2009US11596

PATIENT
  Age: 83 Year
  Sex: Male
  Weight: 108 kg

DRUGS (11)
  1. SIMVASTATIN [Concomitant]
  2. VITAMIN B12 [Concomitant]
  3. COLCHICINE [Concomitant]
  4. LASIX [Concomitant]
  5. METOPROLOL TARTRATE [Concomitant]
  6. EXJADE [Suspect]
     Indication: IRON OVERLOAD
     Dosage: 500 BID, ORAL
     Route: 048
     Dates: start: 20080501, end: 20090824
  7. LISINOPRIL [Concomitant]
  8. PRILOSEC [Concomitant]
  9. ADVAIR HFA [Concomitant]
  10. ASPIRIN [Concomitant]
  11. ALBUTEROL [Concomitant]

REACTIONS (1)
  - BLOOD CREATININE INCREASED [None]
